FAERS Safety Report 7531784 (Version 3)
Quarter: 2013Q1

REPORT INFORMATION
  Report Type: Spontaneous
  Country: US (occurrence: US)
  Receive Date: 20100806
  Receipt Date: 20130201
  Transmission Date: 20140127
  Serious: No
  Sender: FDA-Public Use
  Company Number: US-PFIZER INC-2007102959

PATIENT
  Age: 75 Year
  Sex: Male
  Weight: 72.7 kg

DRUGS (5)
  1. DILANTIN-125 [Suspect]
     Indication: ANXIETY
     Dosage: UNK
  2. DILANTIN-125 [Suspect]
     Indication: INSOMNIA
  3. DILANTIN-125 [Suspect]
     Indication: CONVULSION
  4. ZARONTIN [Concomitant]
     Dosage: UNK
  5. PHENOBARBITAL [Concomitant]
     Dosage: UNK

REACTIONS (3)
  - Abnormal behaviour [Not Recovered/Not Resolved]
  - Ataxia [Unknown]
  - Overdose [Unknown]
